FAERS Safety Report 4814295-3 (Version None)
Quarter: 2005Q4

REPORT INFORMATION
  Report Type: 
  Country: None (occurrence: None)
  Receive Date: 20051028
  Receipt Date: 20050801
  Transmission Date: 20060501
  Serious: No
  Sender: FDA-Public Use
  Company Number: US-GLAXOSMITHKLINE-A0568453A

PATIENT
  Age: 84 Year
  Sex: Male

DRUGS (5)
  1. ADVAIR DISKUS 100/50 [Suspect]
     Indication: ASTHMA
     Dosage: 1PUFF TWICE PER DAY
     Route: 055
     Dates: start: 20050201
  2. FLOMAX [Concomitant]
  3. ATIVAN [Concomitant]
  4. EFFEXOR [Concomitant]
  5. PRILOSEC [Concomitant]

REACTIONS (2)
  - EXTRASYSTOLES [None]
  - PALPITATIONS [None]
